FAERS Safety Report 8576463-7 (Version None)
Quarter: 2012Q3

REPORT INFORMATION
  Report Type: 
  Country: None (occurrence: None)
  Receive Date: 20120725
  Receipt Date: 20120716
  Transmission Date: 20120928
  Serious: Yes (Hospitalization)
  Sender: FDA-Public Use
  Company Number: USA/USA/12/0025122

PATIENT
  Age: 26 Year
  Sex: Female

DRUGS (2)
  1. RISPERIDONE [Suspect]
     Indication: PSYCHOTIC DISORDER
  2. ZIPRASIDONE HCL [Suspect]
     Indication: PSYCHOTIC DISORDER

REACTIONS (12)
  - THERAPEUTIC RESPONSE DECREASED [None]
  - MUSCLE SPASTICITY [None]
  - CONDITION AGGRAVATED [None]
  - URINARY TRACT INFECTION [None]
  - NUCLEAR MAGNETIC RESONANCE IMAGING BRAIN ABNORMAL [None]
  - DELUSION [None]
  - CLOSTRIDIUM DIFFICILE COLITIS [None]
  - ABULIA [None]
  - ACTIVITIES OF DAILY LIVING IMPAIRED [None]
  - HOMICIDAL IDEATION [None]
  - MEMORY IMPAIRMENT [None]
  - DISTURBANCE IN ATTENTION [None]
